FAERS Safety Report 6687657-X (Version None)
Quarter: 2010Q2

REPORT INFORMATION
  Report Type: 
  Country: None (occurrence: None)
  Receive Date: 20100415
  Receipt Date: 20100331
  Transmission Date: 20101027
  Serious: Yes (Life-Threatening, Hospitalization)
  Sender: FDA-Public Use
  Company Number: 2010SP001058

PATIENT
  Age: 78 Year
  Sex: Female

DRUGS (5)
  1. ALVESCO [Suspect]
     Indication: BRONCHITIS
     Dosage: 200 UG;1X; INHALATION
     Route: 055
     Dates: start: 20091216, end: 20091217
  2. CHLORDIAZEPOXIDE [Concomitant]
  3. ERYTHROMYCIN [Concomitant]
  4. ESTOLATE [Concomitant]
  5. ASPIRIN [Concomitant]

REACTIONS (2)
  - ANAPHYLACTIC REACTION [None]
  - STOMATITIS [None]
